FAERS Safety Report 7536578-9 (Version None)
Quarter: 2011Q2

REPORT INFORMATION
  Report Type: 
  Country: None (occurrence: None)
  Receive Date: 20110609
  Receipt Date: 20110531
  Transmission Date: 20111010
  Serious: Yes (Hospitalization, Other)
  Sender: FDA-Public Use
  Company Number: US-ASTRAZENECA-2011SE33470

PATIENT
  Age: 59 Year
  Sex: Male

DRUGS (1)
  1. TOPROL-XL [Suspect]
     Indication: HYPERTENSION
     Route: 048
     Dates: start: 20020101

REACTIONS (3)
  - CARDIAC PACEMAKER INSERTION [None]
  - DIZZINESS [None]
  - CONDUCTION DISORDER [None]
